FAERS Safety Report 23619540 (Version 1)
Quarter: 2024Q1

REPORT INFORMATION
  Report Type: Spontaneous
  Country: BR (occurrence: BR)
  Receive Date: 20240312
  Receipt Date: 20240312
  Transmission Date: 20240410
  Serious: No
  Sender: FDA-Public Use
  Company Number: BR-WW-2024-AMR-019857

PATIENT
  Age: 51 Year
  Sex: Female

DRUGS (1)
  1. AVODART [Suspect]
     Active Substance: DUTASTERIDE
     Dosage: 0.5 MG
     Route: 065

REACTIONS (1)
  - Contraindicated product prescribed [Unknown]
